FAERS Safety Report 7536129-9 (Version None)
Quarter: 2011Q2

REPORT INFORMATION
  Report Type: 
  Country: None (occurrence: None)
  Receive Date: 20110609
  Receipt Date: 20110601
  Transmission Date: 20111010
  Serious: Yes (Hospitalization)
  Sender: FDA-Public Use
  Company Number: US-NOVOPROD-327019

PATIENT
  Age: 62 Year
  Sex: Female
  Weight: 99.773 kg

DRUGS (4)
  1. LEVEMIR [Suspect]
     Indication: TYPE 2 DIABETES MELLITUS
     Dosage: 30 U AM, 40 U PM
     Route: 058
     Dates: start: 20090511
  2. MICARDIS [Concomitant]
     Indication: PRODUCT USED FOR UNKNOWN INDICATION
     Dosage: UNK
     Dates: end: 20110401
  3. LOTREL [Concomitant]
     Indication: PRODUCT USED FOR UNKNOWN INDICATION
     Dosage: UNK
     Dates: end: 20110401
  4. LEVEMIR [Suspect]
     Dosage: 40 U AM, 45 U PM
     Route: 058
     Dates: start: 20110401

REACTIONS (3)
  - DIABETES MELLITUS INADEQUATE CONTROL [None]
  - ATRIAL FIBRILLATION [None]
  - ABDOMINAL PAIN UPPER [None]
